FAERS Safety Report 5581942-0 (Version None)
Quarter: 2008Q1

REPORT INFORMATION
  Report Type: 
  Country: None (occurrence: None)
  Receive Date: 20080104
  Receipt Date: 20071231
  Transmission Date: 20080703
  Serious: Yes (Life-Threatening, Hospitalization)
  Sender: FDA-Public Use
  Company Number: B0489791A

PATIENT
  Age: 69 Year
  Sex: Male

DRUGS (8)
  1. AUGMENTIN '125' [Suspect]
     Indication: ANTIBIOTIC PROPHYLAXIS
     Dosage: 2G PER DAY
     Route: 042
     Dates: start: 20070802, end: 20070802
  2. ULTIVA [Concomitant]
     Route: 042
     Dates: start: 20070802, end: 20070802
  3. DIPRIVAN [Concomitant]
     Route: 042
     Dates: start: 20070802, end: 20070802
  4. SEVORANE [Concomitant]
     Route: 055
     Dates: start: 20070802, end: 20070802
  5. LIPANTHYL [Concomitant]
  6. ZYLORIC [Concomitant]
  7. TENORETIC 100 [Concomitant]
  8. ATARAX [Concomitant]
     Indication: PREMEDICATION
     Dosage: 100MG PER DAY
     Route: 065
     Dates: start: 20070802

REACTIONS (7)
  - ANAPHYLACTOID SHOCK [None]
  - CYANOSIS [None]
  - GENERALISED ERYTHEMA [None]
  - HEART RATE INCREASED [None]
  - HYPOTENSION [None]
  - OXYGEN SATURATION DECREASED [None]
  - URTICARIA [None]
